FAERS Safety Report 7772879-7 (Version None)
Quarter: 2011Q3

REPORT INFORMATION
  Report Type: 
  Country: None (occurrence: None)
  Receive Date: 20110922
  Receipt Date: 20110427
  Transmission Date: 20111222
  Serious: No
  Sender: FDA-Public Use
  Company Number: US-ASTRAZENECA-2010SE43213

PATIENT
  Age: 54 Year
  Sex: Female
  Weight: 56.7 kg

DRUGS (6)
  1. XANAX [Concomitant]
     Dosage: 0.5 MG AS REQUIRED
  2. SEROQUEL XR [Suspect]
     Dosage: TWO 50 MG TABLETS IN THE MORNING
     Route: 048
     Dates: start: 20110301
  3. TEMAZEPAM [Concomitant]
     Indication: SLEEP DISORDER
  4. SEROQUEL XR [Suspect]
     Indication: DEPRESSION
     Route: 048
     Dates: start: 20090101, end: 20110301
  5. SEROQUEL XR [Suspect]
     Dosage: TWO 50 MG TABLETS IN THE MORNING
     Route: 048
     Dates: start: 20110301
  6. SEROQUEL XR [Suspect]
     Indication: ANXIETY
     Route: 048
     Dates: start: 20090101, end: 20110301

REACTIONS (8)
  - HEART RATE INCREASED [None]
  - THERAPEUTIC PRODUCT INEFFECTIVE FOR UNAPPROVED INDICATION [None]
  - DYSKINESIA [None]
  - DYSGEUSIA [None]
  - DRY MOUTH [None]
  - DRUG DOSE OMISSION [None]
  - ACTIVITIES OF DAILY LIVING IMPAIRED [None]
  - TONGUE DISORDER [None]
